FAERS Safety Report 8056591-5 (Version None)
Quarter: 2012Q1

REPORT INFORMATION
  Report Type: 
  Country: None (occurrence: None)
  Receive Date: 20120119
  Receipt Date: 20110718
  Transmission Date: 20120608
  Serious: Yes (Other)
  Sender: FDA-Public Use
  Company Number: PHHY2011ZA56154

PATIENT
  Age: 20 Year
  Sex: Male

DRUGS (3)
  1. TOPIRAMATE [Suspect]
     Indication: EPILEPSY
     Dosage: 50 MG, BID
     Route: 048
     Dates: start: 19960101
  2. VALPROATE SODIUM [Suspect]
     Indication: EPILEPSY
     Dosage: 2500 MG, DAILY
     Route: 048
     Dates: start: 19960101
  3. CARBAMAZEPINE [Suspect]
     Indication: EPILEPSY
     Dosage: 400 MG, BID
     Route: 048
     Dates: start: 19960101

REACTIONS (9)
  - COGNITIVE DISORDER [None]
  - PERSONALITY CHANGE [None]
  - PSYCHOMOTOR RETARDATION [None]
  - ABNORMAL BEHAVIOUR [None]
  - MOOD ALTERED [None]
  - DYSARTHRIA [None]
  - IMPULSE-CONTROL DISORDER [None]
  - DISTURBANCE IN ATTENTION [None]
  - AGGRESSION [None]
